FAERS Safety Report 6746923-X (Version None)
Quarter: 2010Q2

REPORT INFORMATION
  Report Type: 
  Country: None (occurrence: None)
  Receive Date: 20100528
  Receipt Date: 20090824
  Transmission Date: 20101027
  Serious: No
  Sender: FDA-Public Use
  Company Number: US-ASTRAZENECA-2009SE14367

PATIENT
  Sex: Male

DRUGS (7)
  1. PRILOSEC OTC [Suspect]
     Dosage: 1 TABLET, 1 /DAY
     Route: 048
     Dates: start: 20060101
  2. FENOFIBRATE [Concomitant]
     Dosage: UNKNOWN
  3. DIOVAN [Concomitant]
     Dosage: UNKNOWN
  4. FINASTERIDE [Concomitant]
     Dosage: UNKNOWN
  5. DOXAZOSIN MESYLATE [Concomitant]
     Dosage: UNKNOWN
  6. ALLOPURINOL [Concomitant]
     Dosage: UNKNOWN
  7. AVODART [Concomitant]
     Dosage: UNKNOWN

REACTIONS (3)
  - INCORRECT DRUG ADMINISTRATION DURATION [None]
  - MUSCLE SPASMS [None]
  - NIGHT SWEATS [None]
